FAERS Safety Report 8198556-9 (Version None)
Quarter: 2012Q1

REPORT INFORMATION
  Report Type: 
  Country: None (occurrence: None)
  Receive Date: 20120309
  Receipt Date: 20120103
  Transmission Date: 20120608
  Serious: No
  Sender: FDA-Public Use
  Company Number: US-AMGEN-USASP2011064771

PATIENT
  Age: 78 Year
  Sex: Female
  Weight: 79.819 kg

DRUGS (5)
  1. PROLIA [Suspect]
     Indication: OSTEOPOROSIS POSTMENOPAUSAL
     Dosage: 60 MG, ONE TIME DOSE
  2. HYDROCHLOROTHIAZIDE [Concomitant]
     Dosage: UNK
  3. QUINAPRIL [Concomitant]
     Dosage: UNK
  4. CITALOPRAM HYDROBROMIDE [Concomitant]
     Dosage: UNK
  5. VITAMIN D [Concomitant]

REACTIONS (1)
  - DERMATITIS BULLOUS [None]
